FAERS Safety Report 7199555-6 (Version None)
Quarter: 2010Q4

REPORT INFORMATION
  Report Type: 
  Country: None (occurrence: None)
  Receive Date: 20101228
  Receipt Date: 20101216
  Transmission Date: 20110411
  Serious: Yes (Other)
  Sender: FDA-Public Use
  Company Number: PHBS2007GR05591

PATIENT
  Age: 35 Year
  Sex: Male

DRUGS (13)
  1. CYCLOSPORINE [Suspect]
     Indication: BEHCET'S SYNDROME
     Dosage: 200 MG/DAY
     Route: 065
     Dates: start: 20010501, end: 20011201
  2. CYCLOSPORINE [Suspect]
     Dosage: 150 MG/DAY
     Route: 065
     Dates: start: 20011201, end: 20011201
  3. CYCLOSPORINE [Suspect]
     Dosage: 200 MG/DAY
     Route: 065
     Dates: start: 20020101, end: 20020101
  4. CYCLOSPORINE [Suspect]
     Dosage: 250 MG/DAY
     Route: 065
     Dates: start: 20020201, end: 20050101
  5. CYCLOSPORINE [Suspect]
     Dosage: 200 MG/DAY
     Route: 065
     Dates: start: 20050301
  6. AZATHIOPRINE [Suspect]
     Indication: BEHCET'S SYNDROME
     Dosage: 100 MG/DAY
     Route: 065
     Dates: start: 20010501, end: 20011201
  7. AZATHIOPRINE [Suspect]
     Dosage: 150 MG/DAY
     Route: 065
     Dates: start: 20011201, end: 20020501
  8. AZATHIOPRINE [Suspect]
     Dosage: 100 MG/DAY
     Route: 065
     Dates: start: 20020501, end: 20050201
  9. AZATHIOPRINE [Suspect]
     Dosage: 150 MG/DAY
     Route: 065
     Dates: start: 20050201
  10. METHYLPREDNISOLONE [Suspect]
     Indication: BEHCET'S SYNDROME
     Dosage: 64 TO 40 MG/DAY
     Route: 048
     Dates: start: 20010501, end: 20011001
  11. METHYLPREDNISOLONE [Suspect]
     Dosage: 4 MG/DAY
     Route: 048
     Dates: start: 20011001, end: 20050301
  12. METHYLPREDNISOLONE [Suspect]
     Dosage: 64 TO 40 MG/DAY
     Route: 048
     Dates: start: 20050301
  13. ASPIRIN [Suspect]
     Dosage: 325 MG/DAY
     Dates: start: 20010501

REACTIONS (19)
  - BEHCET'S SYNDROME [None]
  - CATARACT [None]
  - DIPLOPIA [None]
  - DISEASE RECURRENCE [None]
  - EYE INFLAMMATION [None]
  - GASTROENTERITIS [None]
  - GRAND MAL CONVULSION [None]
  - HEMIPARESIS [None]
  - HYPERREFLEXIA [None]
  - HYPOAESTHESIA [None]
  - INTRACRANIAL VENOUS SINUS THROMBOSIS [None]
  - NUCLEAR MAGNETIC RESONANCE IMAGING BRAIN ABNORMAL [None]
  - ORCHITIS [None]
  - PUPILLARY REFLEX IMPAIRED [None]
  - PYREXIA [None]
  - RETINAL VASCULITIS [None]
  - UVEITIS [None]
  - VASCULITIS CEREBRAL [None]
  - VISUAL ACUITY REDUCED [None]
